FAERS Safety Report 15677271 (Version 2)
Quarter: 2019Q1

REPORT INFORMATION
  Report Type: Report from Study
  Country: None (occurrence: US)
  Receive Date: 20181130
  Receipt Date: 20190130
  Transmission Date: 20190417
  Serious: Yes (Other)
  Sender: FDA-Public Use
  Company Number: US-ABBVIE-18K-163-2575260-00

PATIENT
  Age: 59 Year
  Sex: Female

DRUGS (11)
  1. JANUMET [Suspect]
     Active Substance: METFORMIN HYDROCHLORIDE\SITAGLIPTIN PHOSPHATE
     Indication: WEIGHT INCREASED
  2. JANUMET [Suspect]
     Active Substance: METFORMIN HYDROCHLORIDE\SITAGLIPTIN PHOSPHATE
     Indication: GLYCOSYLATED HAEMOGLOBIN INCREASED
  3. METFORMIN [Suspect]
     Active Substance: METFORMIN HYDROCHLORIDE
     Indication: GLYCOSYLATED HAEMOGLOBIN INCREASED
  4. AZATHIOPRINE. [Concomitant]
     Active Substance: AZATHIOPRINE
     Indication: PRODUCT USED FOR UNKNOWN INDICATION
  5. HUMIRA [Suspect]
     Active Substance: ADALIMUMAB
     Indication: RHEUMATOID ARTHRITIS
     Route: 058
     Dates: start: 2004
  6. TRULICITY [Suspect]
     Active Substance: DULAGLUTIDE
     Indication: WEIGHT INCREASED
     Route: 048
     Dates: end: 201712
  7. JANUMET [Suspect]
     Active Substance: METFORMIN HYDROCHLORIDE\SITAGLIPTIN PHOSPHATE
     Indication: WEIGHT DECREASED
     Route: 048
     Dates: end: 201712
  8. METFORMIN [Suspect]
     Active Substance: METFORMIN HYDROCHLORIDE
     Indication: WEIGHT INCREASED
     Route: 048
     Dates: end: 201712
  9. TRULICITY [Suspect]
     Active Substance: DULAGLUTIDE
     Indication: GLYCOSYLATED HAEMOGLOBIN INCREASED
  10. SODIUM CHLORIDE. [Concomitant]
     Active Substance: SODIUM CHLORIDE
     Indication: PRODUCT USED FOR UNKNOWN INDICATION
  11. PEDIALYTE [Concomitant]
     Active Substance: POTASSIUM CITRATE\SODIUM CITRATE\ZINC
     Indication: PRODUCT USED FOR UNKNOWN INDICATION

REACTIONS (21)
  - Depressed mood [Unknown]
  - Diarrhoea [Unknown]
  - Pain [Unknown]
  - Platelet count decreased [Recovered/Resolved]
  - Systemic lupus erythematosus [Not Recovered/Not Resolved]
  - Vomiting [Not Recovered/Not Resolved]
  - Pulmonary mass [Not Recovered/Not Resolved]
  - Weight fluctuation [Not Recovered/Not Resolved]
  - Osteopenia [Unknown]
  - Weight decreased [Unknown]
  - Dehydration [Recovering/Resolving]
  - Seizure [Not Recovered/Not Resolved]
  - Hepatic cancer [Recovered/Resolved]
  - Drug hypersensitivity [Recovered/Resolved]
  - Dysstasia [Recovered/Resolved]
  - Hypophagia [Recovered/Resolved]
  - Diabetic ketoacidosis [Recovered/Resolved]
  - Autoimmune hepatitis [Not Recovered/Not Resolved]
  - Transient ischaemic attack [Recovering/Resolving]
  - Meniere^s disease [Not Recovered/Not Resolved]
  - Syncope [Recovered/Resolved]

NARRATIVE: CASE EVENT DATE: 2012
